APPROVED DRUG PRODUCT: AMPHOTERICIN B
Active Ingredient: AMPHOTERICIN B
Strength: 50MG/VIAL
Dosage Form/Route: INJECTABLE;INJECTION
Application: A062728 | Product #001
Applicant: ABRAXIS PHARMACEUTICAL PRODUCTS
Approved: Apr 13, 1987 | RLD: No | RS: No | Type: DISCN